FAERS Safety Report 5531256-X (Version None)
Quarter: 2007Q4

REPORT INFORMATION
  Report Type: 
  Country: None (occurrence: None)
  Receive Date: 20071127
  Receipt Date: 20071115
  Transmission Date: 20080405
  Serious: Yes (Life-Threatening)
  Sender: FDA-Public Use
  Company Number: 2007-03372

PATIENT
  Age: 61 Year

DRUGS (18)
  1. VELCADE [Suspect]
     Indication: MULTIPLE MYELOMA
  2. MELPHALAN(MELPHALAN) VIAL [Suspect]
     Indication: MULTIPLE MYELOMA
     Dosage: 100.00 MG/M2
  3. VALACYCLOVIR [Concomitant]
  4. LORAZEPAM [Concomitant]
  5. ZOLPIDEM [Concomitant]
  6. BUMETANIDE [Concomitant]
  7. AMPHOTERICIN B [Concomitant]
  8. TOBRAMYCIN [Concomitant]
  9. COLISTIN SULFATE (COLISTIN SULFATE) [Concomitant]
  10. ACETAMINOPHEN [Concomitant]
  11. CILASTATIN SODIUM W/IMIPENEM (IMIPENEM, CILASTATIN SODIUM) [Concomitant]
  12. TRANSAMINOZUUR [Concomitant]
  13. MORPHINE [Concomitant]
  14. FLUCONAZOLE [Concomitant]
  15. VORICONAZOLE (VORICONAZOLE) [Concomitant]
  16. HALOPERIDOL [Concomitant]
  17. IPRATROPIUM BROMIDE [Concomitant]
  18. ESOMEPRAZOLE (ESOMEPRAZOLE) [Concomitant]

REACTIONS (5)
  - DYSPNOEA [None]
  - FEBRILE NEUTROPENIA [None]
  - HYPOTENSION [None]
  - MUCOSAL INFLAMMATION [None]
  - RESPIRATORY FAILURE [None]
